FAERS Safety Report 17159077 (Version 1)
Quarter: 2019Q4

REPORT INFORMATION
  Report Type: Spontaneous
  Country: US (occurrence: US)
  Receive Date: 20191214
  Receipt Date: 20191214
  Transmission Date: 20200122
  Serious: Yes (Disabling, Other)
  Sender: FDA-Public Use
  Company Number: None

PATIENT
  Age: 44 Year
  Sex: Female
  Weight: 79.2 kg

DRUGS (1)
  1. NUVARING [Suspect]
     Active Substance: ETHINYL ESTRADIOL\ETONOGESTREL
     Dosage: ?          OTHER FREQUENCY:MONTHLY;?
     Route: 067
     Dates: start: 20190304, end: 20191213

REACTIONS (3)
  - Menorrhagia [None]
  - Full blood count decreased [None]
  - Iron deficiency [None]

NARRATIVE: CASE EVENT DATE: 20190501
